FAERS Safety Report 9219393 (Version 2)
Quarter: 2013Q2

REPORT INFORMATION
  Report Type: Spontaneous
  Country: US (occurrence: US)
  Receive Date: 20130409
  Receipt Date: 20130506
  Transmission Date: 20140414
  Serious: No
  Sender: FDA-Public Use
  Company Number: US-PFIZER INC-2013105360

PATIENT
  Sex: 0

DRUGS (1)
  1. EPIPEN [Suspect]
     Dosage: UNK

REACTIONS (2)
  - Accidental exposure to product [Unknown]
  - Energy increased [Unknown]
